FAERS Safety Report 8505729-1 (Version None)
Quarter: 2012Q3

REPORT INFORMATION
  Report Type: 
  Country: None (occurrence: None)
  Receive Date: 20120706
  Receipt Date: 20120706
  Transmission Date: 20120928
  Serious: Yes (Other)
  Sender: FDA-Public Use
  Company Number: None

PATIENT
  Age: 75 Year
  Sex: Female

DRUGS (2)
  1. METHYL PREDINSOLONE 4MG [Suspect]
     Indication: ARTHRITIS
     Dosage: 6 TABLETS DAY 1, 5
     Dates: start: 20120625, end: 20120701
  2. METHYL PREDINSOLONE 4MG [Suspect]
     Indication: OEDEMA PERIPHERAL
     Dosage: 6 TABLETS DAY 1, 5
     Dates: start: 20120625, end: 20120701

REACTIONS (8)
  - FLUSHING [None]
  - FATIGUE [None]
  - MYALGIA [None]
  - HUNGER [None]
  - MOOD ALTERED [None]
  - EYE PAIN [None]
  - ASTHENIA [None]
  - PARAESTHESIA [None]
